FAERS Safety Report 5404290-8 (Version None)
Quarter: 2007Q3

REPORT INFORMATION
  Report Type: 
  Country: None (occurrence: None)
  Receive Date: 20070731
  Receipt Date: 20070716
  Transmission Date: 20080115
  Serious: Yes (Hospitalization)
  Sender: FDA-Public Use
  Company Number: 2007SP014414

PATIENT
  Age: 39 Year
  Sex: Female

DRUGS (5)
  1. CLARITYNE (LORATADINE) (LORATADINE) [Suspect]
     Indication: NASOPHARYNGITIS
     Dosage: PO
     Route: 048
     Dates: start: 20070502
  2. CLARITYNE (LORATADINE) (LORATADINE) [Suspect]
     Indication: PRURITUS
     Dosage: PO
     Route: 048
     Dates: start: 20070502
  3. NASONEX [Suspect]
     Indication: NASOPHARYNGITIS
     Dosage: PO
     Route: 048
     Dates: start: 20070505
  4. DESLORATADINE [Suspect]
     Indication: RASH MACULO-PAPULAR
     Dosage: 2 DF; PO
     Route: 048
  5. CETIRIZINE HCL [Suspect]
     Indication: PRURITUS
     Dosage: PO
     Route: 048
     Dates: start: 20070509, end: 20070509

REACTIONS (1)
  - ANGIOEDEMA [None]
